FAERS Safety Report 4788637-1 (Version None)
Quarter: 2005Q4

REPORT INFORMATION
  Report Type: 
  Country: None (occurrence: None)
  Receive Date: 20051005
  Receipt Date: 20041203
  Transmission Date: 20060501
  Serious: Yes (Other)
  Sender: FDA-Public Use
  Company Number: GB-GLAXOSMITHKLINE-B0359560A

PATIENT
  Sex: Female

DRUGS (3)
  1. SEROXAT [Suspect]
     Indication: DEPRESSION
     Dosage: 20MG PER DAY
     Route: 065
     Dates: start: 19951228
  2. ZOPICLONE [Concomitant]
     Dates: start: 19960206
  3. ALCOHOL [Concomitant]
     Dates: start: 19960402

REACTIONS (6)
  - COMPLETED SUICIDE [None]
  - ILL-DEFINED DISORDER [None]
  - NAUSEA [None]
  - NERVOUSNESS [None]
  - NIGHTMARE [None]
  - OVERDOSE [None]
